FAERS Safety Report 5525221-6 (Version None)
Quarter: 2007Q4

REPORT INFORMATION
  Report Type: 
  Country: None (occurrence: None)
  Receive Date: 20071126
  Receipt Date: 20071119
  Transmission Date: 20080405
  Serious: Yes (Other)
  Sender: FDA-Public Use
  Company Number: TW-BRISTOL-MYERS SQUIBB COMPANY-13987946

PATIENT
  Age: 28 Year
  Sex: Female

DRUGS (4)
  1. METHOTREXATE [Suspect]
     Indication: DERMATOMYOSITIS
     Dosage: GIVEN FOR 3 MONTHS BEFORE EVENT
     Dates: end: 20041001
  2. PREDNISOLONE [Suspect]
     Indication: DERMATOMYOSITIS
     Dates: end: 20041001
  3. AZATHIOPRINE [Suspect]
     Indication: DERMATOMYOSITIS
  4. HYDROXYCHLOROQUINE SULFATE [Suspect]
     Indication: DERMATOMYOSITIS

REACTIONS (1)
  - FIBROUS HISTIOCYTOMA [None]
